FAERS Safety Report 4310955-1 (Version None)
Quarter: 2004Q1

REPORT INFORMATION
  Report Type: 
  Country: None (occurrence: None)
  Receive Date: 20040302
  Receipt Date: 20040302
  Transmission Date: 20041129
  Serious: Yes (Life-Threatening)
  Sender: FDA-Public Use
  Company Number: None

PATIENT
  Age: 66 Year
  Sex: Male
  Weight: 68.0396 kg

DRUGS (2)
  1. FOSAMAX [Suspect]
     Indication: OSTEOPOROSIS
     Dosage: DAILY ORAL
     Route: 048
     Dates: start: 20031226, end: 20040120
  2. COUMADIN [Suspect]
     Indication: ATRIAL FIBRILLATION
     Dosage: 5 MG DAILY ORAL
     Route: 048

REACTIONS (3)
  - HYPOTENSION [None]
  - OESOPHAGEAL HAEMORRHAGE [None]
  - RECTAL HAEMORRHAGE [None]
